FAERS Safety Report 25274783 (Version 1)
Quarter: 2025Q2

REPORT INFORMATION
  Report Type: Spontaneous
  Country: CN (occurrence: CN)
  Receive Date: 20250506
  Receipt Date: 20250506
  Transmission Date: 20250716
  Serious: Yes (Life-Threatening, Hospitalization, Other)
  Sender: SANOFI AVENTIS
  Company Number: CN-SA-2025SA125442

PATIENT
  Age: 48 Year
  Sex: Male
  Weight: 56 kg

DRUGS (2)
  1. PLAVIX [Suspect]
     Active Substance: CLOPIDOGREL BISULFATE
     Indication: Platelet aggregation inhibition
     Dosage: 75 MG, QD
     Route: 048
     Dates: start: 20250331, end: 20250417
  2. INDOBUFEN [Concomitant]
     Active Substance: INDOBUFEN
     Indication: Platelet aggregation inhibition
     Dosage: 0.1 G, BID
     Route: 048
     Dates: start: 20250331, end: 20250417

REACTIONS (7)
  - Gastritis erosive [Recovering/Resolving]
  - Duodenal ulcer haemorrhage [Recovering/Resolving]
  - Melaena [Recovering/Resolving]
  - Ectopic gastric mucosa [Recovering/Resolving]
  - Oesophagitis [Recovering/Resolving]
  - Duodenitis [Recovering/Resolving]
  - Chronic gastritis [Recovering/Resolving]

NARRATIVE: CASE EVENT DATE: 20250417
